FAERS Safety Report 9924955 (Version 1)
Quarter: 2014Q1

REPORT INFORMATION
  Report Type: Spontaneous
  Country: US (occurrence: None)
  Receive Date: 20140224
  Receipt Date: 20140224
  Transmission Date: 20141002
  Serious: Yes (Other)
  Sender: FDA-Public Use
  Company Number: None

PATIENT
  Age: 36 Year
  Sex: Female

DRUGS (1)
  1. ORTHO TRI-CYCLEN [Suspect]
     Dosage: ONCE A DAY

REACTIONS (6)
  - Influenza like illness [None]
  - Impaired work ability [None]
  - Unresponsive to stimuli [None]
  - Myocardial infarction [None]
  - Coronary artery thrombosis [None]
  - Arteriosclerosis coronary artery [None]
